FAERS Safety Report 7770236-0 (Version None)
Quarter: 2011Q3

REPORT INFORMATION
  Report Type: 
  Country: None (occurrence: None)
  Receive Date: 20110922
  Receipt Date: 20100914
  Transmission Date: 20111222
  Serious: No
  Sender: FDA-Public Use
  Company Number: US-ASTRAZENECA-2010SE43066

PATIENT
  Age: 24271 Day
  Sex: Female
  Weight: 76.7 kg

DRUGS (3)
  1. SEROQUEL XR [Suspect]
     Indication: BIPOLAR DISORDER
     Route: 048
     Dates: start: 20050101
  2. CLONAZEPAM [Concomitant]
     Route: 048
  3. PRISTIQ [Concomitant]
     Indication: DEPRESSION
     Route: 048

REACTIONS (4)
  - TREMOR [None]
  - DYSPHEMIA [None]
  - WEIGHT INCREASED [None]
  - DRUG DOSE OMISSION [None]
